FAERS Safety Report 11593703 (Version 1)
Quarter: 2015Q4

REPORT INFORMATION
  Report Type: Other
  Country: US (occurrence: US)
  Receive Date: 20151005
  Receipt Date: 20151005
  Transmission Date: 20160304
  Serious: Yes (Other)
  Sender: FDA-Public Use
  Company Number: US-SIM_00665_2015

PATIENT
  Sex: Female

DRUGS (1)
  1. DRY EYE RELIEF (HOMEOPATHIC) [Suspect]
     Active Substance: HOMEOPATHICS
     Indication: PRODUCT USED FOR UNKNOWN INDICATION
     Dosage: 2 DROPS/ONCE/
     Route: 047
     Dates: start: 20150923, end: 20150923

REACTIONS (9)
  - Hypersensitivity [Recovered/Resolved]
  - Eye discharge [Recovered/Resolved]
  - Visual impairment [Recovered/Resolved]
  - Ocular vascular disorder [Recovered/Resolved]
  - Vision blurred [Recovered/Resolved]
  - Lacrimal disorder [Recovered/Resolved]
  - Ocular discomfort [Recovered/Resolved]
  - Eye swelling [Recovered/Resolved]
  - Ocular hyperaemia [Recovered/Resolved]

NARRATIVE: CASE EVENT DATE: 20150923
